FAERS Safety Report 8528955 (Version 2)
Quarter: 2012Q4

REPORT INFORMATION
  Report Type: 
  Country: US (occurrence: US)
  Receive Date: 20120425
  Receipt Date: 20120905
  Transmission Date: 20130627
  Serious: Yes (Hospitalization, Other)
  Sender: FDA-Public Use
  Company Number: US-BAYER-2012-038111

PATIENT
  Age: 43 Year
  Sex: Female
  Weight: 55.78 kg

DRUGS (5)
  1. YAZ [Suspect]
     Indication: PREMENSTRUAL SYNDROME
     Dosage: UNK
     Dates: start: 200903, end: 200904
  2. IRON SUPPLEMENT [Concomitant]
     Dosage: UNK
     Dates: start: 200904
  3. MOTRIN [Concomitant]
     Dosage: 600 mg, every 6 hours
  4. ATENOLOL CHLORTHALIDONE [Concomitant]
     Dosage: UNK
  5. TYLENOL [Concomitant]
     Dosage: UNK

REACTIONS (12)
  - Haemorrhage [None]
  - Menorrhagia [None]
  - Ovarian cyst [None]
  - Pain [None]
  - Injury [None]
  - General physical health deterioration [None]
  - Anxiety [None]
  - Emotional distress [None]
  - Stress [None]
  - Mood altered [None]
  - Headache [None]
  - Mental disorder [None]
